FAERS Safety Report 6330412-0 (Version None)
Quarter: 2009Q3

REPORT INFORMATION
  Report Type: 
  Country: None (occurrence: None)
  Receive Date: 20090826
  Receipt Date: 20090826
  Transmission Date: 20100115
  Serious: Yes (Other)
  Sender: FDA-Public Use
  Company Number: None

PATIENT
  Sex: Female
  Weight: 76.6579 kg

DRUGS (1)
  1. SERTRALINE HCL [Suspect]
     Indication: OBSESSIVE-COMPULSIVE DISORDER
     Dosage: 100MG AND 50MG AM AND EVENING PO
     Route: 048
     Dates: start: 20090805, end: 20090825

REACTIONS (5)
  - ABDOMINAL DISCOMFORT [None]
  - DISEASE RECURRENCE [None]
  - DRUG INEFFECTIVE [None]
  - OBSESSIVE THOUGHTS [None]
  - PRODUCT SUBSTITUTION ISSUE [None]
